FAERS Safety Report 13659578 (Version 1)
Quarter: 2017Q2

REPORT INFORMATION
  Report Type: Spontaneous
  Country: US (occurrence: US)
  Receive Date: 20170616
  Receipt Date: 20170616
  Transmission Date: 20170830
  Serious: Yes (Hospitalization)
  Sender: FDA-Public Use
  Company Number: None

PATIENT
  Age: 69 Year
  Sex: Female
  Weight: 57.6 kg

DRUGS (10)
  1. APAP [Concomitant]
     Active Substance: ACETAMINOPHEN
  2. VENTOLIN PM [Concomitant]
  3. WARFARIN [Suspect]
     Active Substance: WARFARIN
     Indication: ATRIAL FIBRILLATION
     Dosage: CHRONIC 5MG DAILY PO
     Route: 048
  4. NORVASC [Concomitant]
     Active Substance: AMLODIPINE BESYLATE
  5. ZYPREXA [Concomitant]
     Active Substance: OLANZAPINE
  6. PREVACHOL [Concomitant]
  7. CATAPRES [Concomitant]
     Active Substance: CLONIDINE HYDROCHLORIDE
  8. LASIX [Concomitant]
     Active Substance: FUROSEMIDE
  9. LOPRESSOR [Concomitant]
     Active Substance: METOPROLOL TARTRATE
  10. ECOTRIN [Suspect]
     Active Substance: ASPIRIN
     Indication: MITRAL VALVE REPAIR
     Dosage: CHRONIC 81MG DAILY PO
     Route: 048

REACTIONS (6)
  - Lower gastrointestinal haemorrhage [None]
  - Fatigue [None]
  - Anaemia [None]
  - Acute kidney injury [None]
  - International normalised ratio increased [None]
  - Hyperkalaemia [None]

NARRATIVE: CASE EVENT DATE: 20170414
